FAERS Safety Report 14481738 (Version 2)
Quarter: 2018Q1

REPORT INFORMATION
  Report Type: Report from Study
  Country: MX (occurrence: MX)
  Receive Date: 20180202
  Receipt Date: 20180212
  Transmission Date: 20180509
  Serious: Yes (Death, Other)
  Sender: FDA-Public Use
  Company Number: PHHY2018MX016600

PATIENT
  Age: 56 Year
  Sex: Female
  Weight: 73 kg

DRUGS (1)
  1. EXJADE [Suspect]
     Active Substance: DEFERASIROX
     Indication: HAEMOSIDEROSIS
     Dosage: 1500 MG, QD
     Route: 048
     Dates: start: 20170823, end: 20180113

REACTIONS (4)
  - Cardio-respiratory arrest [Fatal]
  - Serum ferritin increased [Unknown]
  - Brain injury [Unknown]
  - Renal failure [Unknown]

NARRATIVE: CASE EVENT DATE: 20171118
